FAERS Safety Report 7963336-3 (Version None)
Quarter: 2011Q4

REPORT INFORMATION
  Report Type: 
  Country: None (occurrence: None)
  Receive Date: 20111208
  Receipt Date: 20111129
  Transmission Date: 20120403
  Serious: Yes (Hospitalization)
  Sender: FDA-Public Use
  Company Number: US-PAR PHARMACEUTICAL, INC-2011SCPR003459

PATIENT

DRUGS (16)
  1. WARFARIN SODIUM [Interacting]
     Dosage: 0.75 MG VIA NASOGASTRIC TUBE
     Route: 050
  2. DEXAMETHASONE [Suspect]
     Indication: OEDEMA
     Dosage: 4 MG,
  3. DEXAMETHASONE [Suspect]
     Dosage: 4 MG IV Q6H
  4. DEXAMETHASONE [Suspect]
     Dosage: 2 MG, QD
     Route: 065
  5. VALPROIC ACID [Interacting]
     Dosage: 500 MG TWICE DAILY
  6. LEVETIRACETAM [Concomitant]
     Dosage: 1 G, SINGLE
  7. MIDAZOLAM [Concomitant]
     Indication: COMPLEX PARTIAL SEIZURES
     Dosage: 3 MG, SINGLE
  8. PRAVASTATIN [Concomitant]
     Indication: PRODUCT USED FOR UNKNOWN INDICATION
     Dosage: 20 MG, DAILY
     Route: 048
  9. VALPROIC ACID [Interacting]
     Dosage: 250 MG PER NGT Q6H
     Route: 050
  10. LEVETIRACETAM [Concomitant]
     Indication: COMPLEX PARTIAL SEIZURES
     Dosage: UNK UNK, SINGLE, LOADING DOSE
  11. TEMOZOLOMIDE [Concomitant]
     Indication: PRODUCT USED FOR UNKNOWN INDICATION
     Dosage: UNK, UNKNOWN
     Route: 065
  12. WARFARIN SODIUM [Interacting]
     Dosage: 0.5 MG, UNK
     Route: 065
  13. LEVETIRACETAM [Concomitant]
     Dosage: 2.5 G, BID
  14. VALPROIC ACID [Interacting]
     Indication: PRODUCT USED FOR UNKNOWN INDICATION
     Dosage: 20 MG/KG, SINGLE
  15. FISH OIL [Concomitant]
     Indication: PRODUCT USED FOR UNKNOWN INDICATION
     Dosage: ONE CAP AS NEEDED
     Route: 065
  16. WARFARIN SODIUM [Interacting]
     Indication: DEEP VEIN THROMBOSIS
     Dosage: 2.5 MG ON MONDAY TO FRIDAY, AND 5 MG ON SATURDAY AND SUNDAY
     Route: 048

REACTIONS (4)
  - INTERNATIONAL NORMALISED RATIO INCREASED [None]
  - DRUG INTERACTION [None]
  - WHITE BLOOD CELL COUNT INCREASED [None]
  - BLOOD LACTIC ACID INCREASED [None]
